FAERS Safety Report 14861086 (Version 7)
Quarter: 2018Q3

REPORT INFORMATION
  Report Type: Report from Study
  Country: DE (occurrence: DE)
  Receive Date: 20180508
  Receipt Date: 20180925
  Transmission Date: 20181010
  Serious: Yes (Death, Hospitalization, Other)
  Sender: FDA-Public Use
  Company Number: DE-BRISTOL-MYERS SQUIBB COMPANY-BMS-2018-008361

PATIENT
  Age: 70 Year
  Sex: Female

DRUGS (14)
  1. PREDNISOLONE. [Concomitant]
     Active Substance: PREDNISOLONE
     Indication: MALIGNANT NEOPLASM PROGRESSION
     Dosage: 5 MG, UNK
     Route: 065
  2. NIVOLUMAB [Suspect]
     Active Substance: NIVOLUMAB
     Indication: PRODUCT USED FOR UNKNOWN INDICATION
     Dosage: 3 MG/KG, Q2WK
     Route: 042
     Dates: start: 20180426
  3. OSSOFORTIN                         /00944201/ [Concomitant]
     Indication: PROPHYLAXIS
     Dosage: 2 TAB, UNK
     Route: 065
     Dates: start: 20170510
  4. REMERGIL [Concomitant]
     Active Substance: MIRTAZAPINE
     Indication: MALIGNANT NEOPLASM PROGRESSION
     Dosage: UNK
     Route: 065
     Dates: start: 20180427
  5. NIVOLUMAB [Suspect]
     Active Substance: NIVOLUMAB
     Indication: NON-SMALL CELL LUNG CANCER
     Dosage: 3 MG/KG, Q2WK
     Route: 042
     Dates: start: 20170426
  6. ABSTRAL [Concomitant]
     Active Substance: FENTANYL CITRATE
     Indication: MALIGNANT NEOPLASM PROGRESSION
     Dosage: 200 ?G, UNK
     Route: 065
     Dates: start: 20180412
  7. SULBACTAM [Concomitant]
     Active Substance: SULBACTAM
     Indication: PRODUCT USED FOR UNKNOWN INDICATION
     Dosage: UNK
     Route: 065
     Dates: start: 20180405, end: 20180413
  8. NOVALGIN (METAMIZOLE SODIUM) [Concomitant]
     Active Substance: METAMIZOLE SODIUM
     Indication: MALIGNANT NEOPLASM PROGRESSION
     Dosage: 1 DF, UNK
     Route: 065
     Dates: start: 20170622
  9. STILNOX [Concomitant]
     Active Substance: ZOLPIDEM TARTRATE
     Indication: PROPHYLAXIS
     Dosage: 10 MG, UNK
     Route: 065
     Dates: start: 20170803
  10. PANTOZOL [Concomitant]
     Active Substance: PANTOPRAZOLE SODIUM
     Indication: PROPHYLAXIS
     Dosage: 40 MG, UNK
     Route: 065
     Dates: start: 20170622
  11. MCP [Concomitant]
     Active Substance: METOCLOPRAMIDE HYDROCHLORIDE
     Indication: PRODUCT USED FOR UNKNOWN INDICATION
     Dosage: 1 TAB, UNK
     Route: 065
     Dates: start: 20180110
  12. FENTANYL. [Concomitant]
     Active Substance: FENTANYL
     Indication: MALIGNANT NEOPLASM PROGRESSION
     Dosage: 50 ?G, QH
     Route: 065
     Dates: start: 20170524
  13. FORTIMEL [Concomitant]
     Active Substance: DIETARY SUPPLEMENT
     Indication: MALIGNANT NEOPLASM PROGRESSION
     Dosage: 1 DF, UNK
     Route: 065
     Dates: start: 20171122
  14. DEXAMETHASON ACIS                  /00016001/ [Concomitant]
     Indication: MALIGNANT NEOPLASM PROGRESSION
     Dosage: 12 MG, UNK
     Route: 065
     Dates: start: 20180124

REACTIONS (15)
  - Pain [Recovered/Resolved]
  - Dyspnoea [Not Recovered/Not Resolved]
  - General physical health deterioration [Fatal]
  - Vomiting [Recovered/Resolved]
  - Pneumonia [Recovered/Resolved]
  - Metastases to central nervous system [Not Recovered/Not Resolved]
  - Cough [Not Recovered/Not Resolved]
  - Thrombocytopenia [Recovered/Resolved]
  - Back pain [Unknown]
  - Dysphagia [Unknown]
  - Pain in extremity [Unknown]
  - Fatigue [Not Recovered/Not Resolved]
  - Malignant neoplasm progression [Fatal]
  - Alopecia [Not Recovered/Not Resolved]
  - Anaemia [Recovered/Resolved]

NARRATIVE: CASE EVENT DATE: 20180110
